FAERS Safety Report 12380376 (Version 1)
Quarter: 2016Q2

REPORT INFORMATION
  Report Type: Spontaneous
  Country: US (occurrence: US)
  Receive Date: 20160518
  Receipt Date: 20160518
  Transmission Date: 20160815
  Serious: No
  Sender: FDA-Public Use
  Company Number: US-PFIZER INC-2016226656

PATIENT
  Age: 61 Year
  Weight: 119 kg

DRUGS (13)
  1. RAPAMUNE [Suspect]
     Active Substance: SIROLIMUS
     Dosage: 0.5 MG, DAILY
     Route: 048
     Dates: start: 20150422
  2. NEXIUM [Concomitant]
     Active Substance: ESOMEPRAZOLE MAGNESIUM
     Dosage: 40 MG, 1X/DAY (BEFORE BREAKFAST)
     Route: 048
  3. 65 FE [Concomitant]
     Dosage: 325 MG, 2X/DAY (WITH MEALS)
     Route: 048
  4. LYRICA [Concomitant]
     Active Substance: PREGABALIN
     Dosage: 50 MG, 2X/DAY
     Route: 048
     Dates: start: 20160105
  5. MIRALAX [Concomitant]
     Active Substance: POLYETHYLENE GLYCOL 3350
     Dosage: 17 G, DAILY
     Route: 048
  6. MAG-OX [Concomitant]
     Active Substance: MAGNESIUM OXIDE
     Dosage: 400 MG, DAILY
     Route: 048
  7. MYFORTIC [Concomitant]
     Active Substance: MYCOPHENOLATE SODIUM
     Indication: RENAL TRANSPLANT
     Dosage: 360 MG, 2X/DAY
     Route: 048
  8. RAPAMUNE [Suspect]
     Active Substance: SIROLIMUS
     Indication: RENAL TRANSPLANT
     Dosage: 3 MG, 2X/DAY
     Route: 048
  9. RAPAMUNE [Suspect]
     Active Substance: SIROLIMUS
     Dosage: 3 MG, DAILY
  10. OXYCODONE [Concomitant]
     Active Substance: OXYCODONE
     Dosage: UNK UNK, AS NEEDED, EVERY 8 HOURS
     Route: 048
     Dates: start: 20141119
  11. DESYREL [Concomitant]
     Active Substance: TRAZODONE HYDROCHLORIDE
     Dosage: 50 MG, 1X/DAY (NIGHTLY)
     Route: 048
  12. RAPAMUNE [Suspect]
     Active Substance: SIROLIMUS
     Dosage: 4 MG, DAILY
     Route: 048
  13. DRISDOL [Concomitant]
     Active Substance: ERGOCALCIFEROL
     Dosage: 5000 IU, WEEKLY
     Route: 048

REACTIONS (3)
  - Protein urine present [Unknown]
  - Gastrooesophageal reflux disease [Unknown]
  - Product use issue [Unknown]

NARRATIVE: CASE EVENT DATE: 20150518
